FAERS Safety Report 12100948 (Version 1)
Quarter: 2016Q1

REPORT INFORMATION
  Report Type: Spontaneous
  Country: US (occurrence: US)
  Receive Date: 20160222
  Receipt Date: 20160222
  Transmission Date: 20160526
  Serious: Yes (Life-Threatening)
  Sender: FDA-Public Use
  Company Number: US-BANPHARM-20164673

PATIENT
  Age: 25 Year
  Sex: Female

DRUGS (1)
  1. DIPHENHYDRAMINE UNKNOWN PRODUCT [Suspect]
     Active Substance: DIPHENHYDRAMINE

REACTIONS (8)
  - Electrocardiogram QRS complex prolonged [None]
  - Sinus tachycardia [None]
  - Status epilepticus [Recovering/Resolving]
  - Intentional overdose [Unknown]
  - Hypotension [Recovering/Resolving]
  - Electrocardiogram QRS complex abnormal [Recovering/Resolving]
  - Ventricular extrasystoles [None]
  - Electrocardiogram PQ interval prolonged [None]
